FAERS Safety Report 4770196-0 (Version None)
Quarter: 2005Q3

REPORT INFORMATION
  Report Type: 
  Country: None (occurrence: None)
  Receive Date: 20050915
  Receipt Date: 20050909
  Transmission Date: 20060218
  Serious: Yes (Other)
  Sender: FDA-Public Use
  Company Number: US-JNJFOC-20050803930

PATIENT
  Sex: Male
  Weight: 68.95 kg

DRUGS (1)
  1. LEVAQUIN [Suspect]
     Route: 048
     Dates: start: 20050802, end: 20050806

REACTIONS (7)
  - ANTINUCLEAR ANTIBODY NEGATIVE [None]
  - ARTHRALGIA [None]
  - MUSCLE ATROPHY [None]
  - MUSCULAR WEAKNESS [None]
  - NEUROPATHY PERIPHERAL [None]
  - PARAESTHESIA [None]
  - TENDON DISORDER [None]
